FAERS Safety Report 5016170-0 (Version None)
Quarter: 2006Q2

REPORT INFORMATION
  Report Type: 
  Country: None (occurrence: None)
  Receive Date: 20060414
  Receipt Date: 20060209
  Transmission Date: 20061013
  Serious: No
  Sender: FDA-Public Use
  Company Number: 2006SP000737

PATIENT
  Sex: 0

DRUGS (1)
  1. LUNESTA [Suspect]
     Dosage: 3 MG
     Dates: start: 20060101

REACTIONS (1)
  - GYNAECOMASTIA [None]
